FAERS Safety Report 5692817-0 (Version None)
Quarter: 2008Q2

REPORT INFORMATION
  Report Type: 
  Country: None (occurrence: None)
  Receive Date: 20080401
  Receipt Date: 20080320
  Transmission Date: 20081010
  Serious: Yes (Other)
  Sender: FDA-Public Use
  Company Number: 2008SP005294

PATIENT
  Age: 28 Year
  Sex: Male
  Weight: 93 kg

DRUGS (6)
  1. TEMODAL [Suspect]
     Indication: OLIGODENDROGLIOMA
     Dosage: 75 MG; QD; PO; 200  MG; QD; PO
     Route: 048
     Dates: start: 20071126, end: 20080111
  2. TEMODAL [Suspect]
     Indication: OLIGODENDROGLIOMA
     Dosage: 75 MG; QD; PO; 200  MG; QD; PO
     Route: 048
     Dates: start: 20080130, end: 20080203
  3. NEUROTOP (CARBAMAZEPINE) [Suspect]
     Indication: DRUG USE FOR UNKNOWN INDICATION
     Dosage: 300 MG; BID
     Dates: end: 20080320
  4. PASPERTIN [Concomitant]
  5. ALLOPURINOL [Concomitant]
  6. PANTOPRAZOLE SODIUM [Concomitant]

REACTIONS (2)
  - EOSINOPHILIA [None]
  - RASH GENERALISED [None]
